FAERS Safety Report 6779234-7 (Version None)
Quarter: 2010Q2

REPORT INFORMATION
  Report Type: 
  Country: None (occurrence: None)
  Receive Date: 20100618
  Receipt Date: 20100528
  Transmission Date: 20101027
  Serious: No
  Sender: FDA-Public Use
  Company Number: A0860295A

PATIENT
  Age: 83 Year
  Sex: Female

DRUGS (13)
  1. PROMACTA [Suspect]
     Indication: IDIOPATHIC THROMBOCYTOPENIC PURPURA
     Route: 048
     Dates: start: 20100428
  2. OMEPRAZOLE [Suspect]
     Indication: DRUG USE FOR UNKNOWN INDICATION
  3. GLUCOSAMINE CHONDROITIN [Concomitant]
  4. PEPCID [Concomitant]
  5. FUROSEMIDE [Concomitant]
  6. FOLIC ACID [Concomitant]
  7. ENALAPRIL MALEATE [Concomitant]
  8. METOPROLOL TARTRATE [Concomitant]
  9. TYLENOL [Concomitant]
  10. BENAZEPRIL HYDROCHLORIDE [Concomitant]
  11. UNKNOWN [Concomitant]
  12. FUROSEMIDE [Concomitant]
  13. UNKNOWN [Concomitant]

REACTIONS (3)
  - DRUG INTERACTION [None]
  - DYSPEPSIA [None]
  - VISUAL IMPAIRMENT [None]
